FAERS Safety Report 4453417-3 (Version None)
Quarter: 2004Q3

REPORT INFORMATION
  Report Type: 
  Country: None (occurrence: None)
  Receive Date: 20040920
  Receipt Date: 20040906
  Transmission Date: 20050211
  Serious: Yes (Other)
  Sender: FDA-Public Use
  Company Number: GB-JNJFOC-20040901570

PATIENT
  Age: 9 Year
  Sex: Male
  Weight: 32 kg

DRUGS (2)
  1. CONCERTA [Suspect]
     Route: 049
  2. MELATONIN [Concomitant]
     Indication: SLEEP DISORDER
     Route: 065

REACTIONS (1)
  - VASOCONSTRICTION [None]
